FAERS Safety Report 8658018 (Version 3)
Quarter: 2013Q2

REPORT INFORMATION
  Report Type: Spontaneous
  Country: US (occurrence: US)
  Receive Date: 20120710
  Receipt Date: 20130408
  Transmission Date: 20140414
  Serious: Yes (Hospitalization)
  Sender: FDA-Public Use
  Company Number: US-BAYER-2012-067387

PATIENT
  Age: 19 Year
  Sex: Female
  Weight: 83.9 kg

DRUGS (9)
  1. BEYAZ [Suspect]
     Indication: CONTRACEPTION
     Dosage: UNK
     Dates: start: 201102
  2. BEYAZ [Suspect]
     Indication: CONTRACEPTION
     Dosage: UNK
     Dates: start: 201012, end: 201102
  3. YAZ [Suspect]
     Indication: CONTRACEPTION
     Dosage: UNK
     Dates: start: 200908, end: 201006
  4. YAZ [Suspect]
     Indication: CONTRACEPTION
     Dosage: UNK
     Dates: start: 200908, end: 201008
  5. LOESTRIN FE [Concomitant]
     Dosage: 1MG-10MCG/10MCG
     Route: 048
  6. ACETAZOLAMIDE [Concomitant]
     Indication: HEADACHE
     Dosage: UNK
     Dates: start: 200911, end: 201111
  7. AMITRIPTYLINE [Concomitant]
     Dosage: 10 MG, UNK
  8. IMITREX [Concomitant]
     Dosage: 50 MG, UNK
  9. LOESTRIN [Concomitant]
     Dosage: UNK
     Dates: start: 201105, end: 201111

REACTIONS (4)
  - Intracranial venous sinus thrombosis [None]
  - Jugular vein thrombosis [None]
  - Injury [None]
  - Mental disorder [None]
